FAERS Safety Report 8606829-8 (Version None)
Quarter: 2012Q3

REPORT INFORMATION
  Report Type: 
  Country: None (occurrence: None)
  Receive Date: 20120820
  Receipt Date: 20120810
  Transmission Date: 20120928
  Serious: Yes (Other)
  Sender: FDA-Public Use
  Company Number: CA-ROCHE-1102538

PATIENT
  Sex: Male

DRUGS (3)
  1. VENTOLIN [Concomitant]
  2. XOLAIR [Suspect]
     Indication: ASTHMA
     Route: 058
     Dates: start: 20120726
  3. ADVAIR [Concomitant]

REACTIONS (2)
  - HERPES OPHTHALMIC [None]
  - CONJUNCTIVITIS ALLERGIC [None]
